FAERS Safety Report 10240574 (Version 1)
Quarter: 2014Q1

REPORT INFORMATION
  Report Type: Spontaneous
  Country: US (occurrence: None)
  Receive Date: 20140306
  Receipt Date: 20140306
  Transmission Date: 20141002
  Serious: Yes (Hospitalization)
  Sender: FDA-Public Use
  Company Number: 163-21880-13033889

PATIENT
  Age: 62 Year
  Sex: Female

DRUGS (8)
  1. REVLIMID (LENALIDOMIDE) (25 MILLIGRAM, CAPSULES) [Suspect]
     Indication: PLASMA CELL MYELOMA
     Dosage: 25 MG, 1 IN 1 D, PO 01/ /2013 - UNKNOWN THERAPY DATES
     Route: 048
     Dates: start: 201301
  2. DECADRON (DEXAMETHASONE) (4 MILLIGRAM, UNKNOWN) [Concomitant]
  3. PREVACID (LANSOPRAZOLE) (UNKNOWN) [Concomitant]
  4. NEURONTIN (GABAPENTIN) (UNKNOWN) [Concomitant]
  5. GLUCOTROL (GLIPIZIDE) (UNKNOWN) [Concomitant]
  6. GLUCOPHAGE (METFORMIN HYDROCHLORIDE) (UNKNOWN) [Concomitant]
  7. BABY ASPIRIN (ACETYLSALICYLIC ACID) (UNKNOWN) [Concomitant]
  8. FAMVIR (FAMICICLOVIR) (UNKNOWN) [Concomitant]

REACTIONS (2)
  - Gastrointestinal haemorrhage [None]
  - Haemoglobin decreased [None]
